FAERS Safety Report 11011142 (Version 1)
Quarter: 2015Q2

REPORT INFORMATION
  Report Type: Spontaneous
  Country: GB (occurrence: GB)
  Receive Date: 20150410
  Receipt Date: 20150410
  Transmission Date: 20150821
  Serious: Yes (Death)
  Sender: FDA-Public Use
  Company Number: GB-ASTRAZENECA-2015SE33008

PATIENT
  Age: 32 Year
  Sex: Female

DRUGS (8)
  1. DIAZEPAM. [Concomitant]
     Active Substance: DIAZEPAM
  2. BACLOFEN. [Concomitant]
     Active Substance: BACLOFEN
  3. CHLORAMPHENICOL [Concomitant]
     Active Substance: CHLORAMPHENICOL
     Dosage: 10ML
     Route: 061
  4. SERTRALINE [Suspect]
     Active Substance: SERTRALINE HYDROCHLORIDE
     Indication: DEPRESSION
     Route: 048
  5. PREGABALIN. [Concomitant]
     Active Substance: PREGABALIN
  6. DOXYCYCLINE. [Concomitant]
     Active Substance: DOXYCYCLINE
  7. MORPHINE SULPHATE [Concomitant]
     Active Substance: MORPHINE SULFATE
     Dosage: 10MG/5ML
  8. QUETIAPINE [Suspect]
     Active Substance: QUETIAPINE
     Indication: DEPRESSION
     Route: 048

REACTIONS (6)
  - Circulatory collapse [Fatal]
  - Pulmonary infarction [Fatal]
  - Phlebitis [Fatal]
  - Pulmonary embolism [Fatal]
  - Deep vein thrombosis [Fatal]
  - Right ventricular hypertrophy [Fatal]
